FAERS Safety Report 10062377 (Version 1)
Quarter: 2014Q2

REPORT INFORMATION
  Report Type: Spontaneous
  Country: US (occurrence: US)
  Receive Date: 20140407
  Receipt Date: 20140407
  Transmission Date: 20141212
  Serious: No
  Sender: FDA-Public Use
  Company Number: US-PFIZER INC-2014097010

PATIENT
  Sex: Female

DRUGS (6)
  1. NEURONTIN [Suspect]
     Indication: MERALGIA PARAESTHETICA
     Dosage: 300 MG, 2X/DAY
     Dates: start: 201403
  2. NEURONTIN [Suspect]
     Dosage: 300 MG, 3X/DAY
     Dates: start: 20140331
  3. ZYRTEC [Concomitant]
     Indication: HYPERSENSITIVITY
     Dosage: UNK
  4. NASONEX [Concomitant]
     Indication: HYPERSENSITIVITY
     Dosage: UNK
  5. ROXICODONE [Concomitant]
     Indication: PAIN
     Dosage: UNK
  6. MINASTRIN [Concomitant]
     Indication: CONTRACEPTION
     Dosage: UNK

REACTIONS (1)
  - Muscle twitching [Not Recovered/Not Resolved]
